FAERS Safety Report 15689959 (Version 1)
Quarter: 2018Q4

REPORT INFORMATION
  Report Type: Spontaneous
  Country: CA (occurrence: CA)
  Receive Date: 20181205
  Receipt Date: 20181205
  Transmission Date: 20190205
  Serious: Yes (Disabling)
  Sender: FDA-Public Use
  Company Number: CA-BAUSCH-BL-2018-033681

PATIENT
  Age: 49 Year
  Sex: Female

DRUGS (1)
  1. ALDARA [Suspect]
     Active Substance: IMIQUIMOD
     Indication: HYPERKERATOSIS
     Dosage: AS REQUIRED
     Route: 061

REACTIONS (7)
  - Migraine [Recovering/Resolving]
  - Nausea [Recovering/Resolving]
  - Impaired work ability [Recovering/Resolving]
  - Tremor [Recovering/Resolving]
  - Eating disorder [Recovering/Resolving]
  - Cough [Recovering/Resolving]
  - Fatigue [Recovering/Resolving]
